FAERS Safety Report 7099235-1 (Version None)
Quarter: 2010Q4

REPORT INFORMATION
  Report Type: 
  Country: None (occurrence: None)
  Receive Date: 20101112
  Receipt Date: 20101103
  Transmission Date: 20110411
  Serious: Yes (Hospitalization)
  Sender: FDA-Public Use
  Company Number: US-CELGENEUS-163-20785-10110749

PATIENT
  Sex: Male

DRUGS (2)
  1. THALOMID [Suspect]
     Indication: MULTIPLE MYELOMA
     Route: 048
     Dates: start: 20060701
  2. THALOMID [Suspect]
     Route: 048
     Dates: start: 20090301

REACTIONS (3)
  - ASTHENIA [None]
  - GASTROINTESTINAL DISORDER [None]
  - RENAL DISORDER [None]
